FAERS Safety Report 6308603-4 (Version None)
Quarter: 2009Q3

REPORT INFORMATION
  Report Type: 
  Country: None (occurrence: None)
  Receive Date: 20090811
  Receipt Date: 20090727
  Transmission Date: 20100115
  Serious: Yes (Disabling)
  Sender: FDA-Public Use
  Company Number: GB-DEXPHARM-20090814

PATIENT
  Age: 76 Year
  Sex: Male

DRUGS (2)
  1. CORSODYL ACTIVE SUBSTANCES: CHLORHEXIDINE GLUCONATE [Suspect]
     Indication: DENTAL CARE
  2. ASPIRIN [Concomitant]

REACTIONS (1)
  - STEVENS-JOHNSON SYNDROME [None]
